FAERS Safety Report 4911337-1 (Version None)
Quarter: 2006Q1

REPORT INFORMATION
  Report Type: 
  Country: None (occurrence: None)
  Receive Date: 20060214
  Receipt Date: 20060206
  Transmission Date: 20060701
  Serious: Yes (Other)
  Sender: FDA-Public Use
  Company Number: GB-ABBOTT-06P-167-0324200-00

PATIENT
  Age: 38 Year
  Sex: Female
  Weight: 117 kg

DRUGS (3)
  1. MERIDIA [Suspect]
     Indication: WEIGHT DECREASED
     Route: 048
     Dates: start: 20050218, end: 20050412
  2. BUPROPION HCL [Suspect]
     Indication: SMOKING CESSATION THERAPY
     Route: 048
     Dates: start: 20050318, end: 20050412
  3. NICOTINE [Concomitant]
     Indication: DRUG USE FOR UNKNOWN INDICATION
     Dates: end: 20050218

REACTIONS (3)
  - DRUG INTERACTION [None]
  - FLUSHING [None]
  - HYPERHIDROSIS [None]
